FAERS Safety Report 17174497 (Version 6)
Quarter: 2020Q3

REPORT INFORMATION
  Report Type: Report from Study
  Country: US (occurrence: US)
  Receive Date: 20191219
  Receipt Date: 20200827
  Transmission Date: 20201102
  Serious: Yes (Hospitalization)
  Sender: FDA-Public Use
  Company Number: NVSC2019US070403

PATIENT
  Age: 21 Year
  Sex: Female

DRUGS (4)
  1. GILENYA [Suspect]
     Active Substance: FINGOLIMOD HYDROCHLORIDE
     Dosage: 0.5 MG, QD
     Route: 048
     Dates: start: 20191218
  2. GILENYA [Suspect]
     Active Substance: FINGOLIMOD HYDROCHLORIDE
     Indication: MULTIPLE SCLEROSIS
     Dosage: 0.5 MG, QD
     Route: 048
     Dates: start: 20191211
  3. GILENYA [Suspect]
     Active Substance: FINGOLIMOD HYDROCHLORIDE
     Dosage: 0.5 MG, QD
     Route: 048
     Dates: start: 20191214
  4. GILENYA [Suspect]
     Active Substance: FINGOLIMOD HYDROCHLORIDE
     Dosage: UNK
     Route: 065

REACTIONS (11)
  - Multiple sclerosis relapse [Not Recovered/Not Resolved]
  - Paraesthesia [Not Recovered/Not Resolved]
  - Fall [Unknown]
  - Back pain [Not Recovered/Not Resolved]
  - Headache [Not Recovered/Not Resolved]
  - Fatigue [Unknown]
  - Neck pain [Not Recovered/Not Resolved]
  - Irritability [Unknown]
  - Sensory disturbance [Unknown]
  - Nausea [Not Recovered/Not Resolved]
  - Movement disorder [Unknown]

NARRATIVE: CASE EVENT DATE: 20200224
